FAERS Safety Report 11614599 (Version 3)
Quarter: 2015Q4

REPORT INFORMATION
  Report Type: Spontaneous
  Country: US (occurrence: US)
  Receive Date: 20151009
  Receipt Date: 20151123
  Transmission Date: 20160304
  Serious: Yes (Other)
  Sender: FDA-Public Use
  Company Number: US-BEH-2015054376

PATIENT
  Age: 15 Year
  Sex: Male
  Weight: 59.1 kg

DRUGS (10)
  1. KYTRIL [Concomitant]
     Active Substance: GRANISETRON HYDROCHLORIDE
  2. VALCYTE [Concomitant]
     Active Substance: VALGANCICLOVIR HYDROCHLORIDE
  3. PRIVIGEN [Suspect]
     Active Substance: HUMAN IMMUNOGLOBULIN G
     Dosage: RECEIVED MULTIPLE INFUSIONS
  4. ZOLOFT [Concomitant]
     Active Substance: SERTRALINE HYDROCHLORIDE
  5. VFEND [Concomitant]
     Active Substance: VORICONAZOLE
  6. PRIVIGEN [Suspect]
     Active Substance: HUMAN IMMUNOGLOBULIN G
     Indication: ACUTE MYELOID LEUKAEMIA
     Dosage: 150 ML/HR (MAX INFUSION)
     Route: 042
     Dates: start: 20150902, end: 20150902
  7. PRIVIGEN [Suspect]
     Active Substance: HUMAN IMMUNOGLOBULIN G
     Dosage: 150 ML/HR (MAX INFUSION)
     Route: 042
     Dates: start: 20150916, end: 20150916
  8. PRIVIGEN [Suspect]
     Active Substance: HUMAN IMMUNOGLOBULIN G
     Dosage: 150 ML /HR (MAX INFUSION)
     Route: 042
     Dates: start: 20150819, end: 20150819
  9. PRIVIGEN [Suspect]
     Active Substance: HUMAN IMMUNOGLOBULIN G
     Dosage: RECEIVED MULTIPLE INFUSIONS
  10. RITUXAN [Concomitant]
     Active Substance: RITUXIMAB

REACTIONS (1)
  - Autoimmune haemolytic anaemia [Not Recovered/Not Resolved]

NARRATIVE: CASE EVENT DATE: 20150924
